FAERS Safety Report 4507024-4 (Version None)
Quarter: 2004Q4

REPORT INFORMATION
  Report Type: 
  Country: None (occurrence: None)
  Receive Date: 20041117
  Receipt Date: 20041103
  Transmission Date: 20050328
  Serious: Yes (Congenital Anomaly)
  Sender: FDA-Public Use
  Company Number: 2004AP05606

PATIENT
  Sex: Female
  Weight: 1.589 kg

DRUGS (1)
  1. TENORMIN [Suspect]
     Dosage: 50 MG DAILY TPL
     Route: 061

REACTIONS (8)
  - ASPHYXIA [None]
  - CAESAREAN SECTION [None]
  - CONGENITAL ANOMALY [None]
  - DRUG EXPOSURE DURING PREGNANCY [None]
  - FOETAL GROWTH RETARDATION [None]
  - HYPOGLYCAEMIA NEONATAL [None]
  - PLACENTAL INSUFFICIENCY [None]
  - SMALL FOR DATES BABY [None]
